FAERS Safety Report 9344631 (Version 1)
Quarter: 2013Q2

REPORT INFORMATION
  Report Type: Spontaneous
  Country: GB (occurrence: GB)
  Receive Date: 20130612
  Receipt Date: 20130612
  Transmission Date: 20140414
  Serious: Yes (Hospitalization)
  Sender: FDA-Public Use
  Company Number: GB-TEVA-411014ISR

PATIENT
  Age: 39 Year
  Sex: Male

DRUGS (6)
  1. SODIUM VALPROATE [Suspect]
     Indication: CONVULSION PROPHYLAXIS
     Dosage: 1000 MILLIGRAM DAILY;
     Route: 065
  2. CLOZAPINE [Interacting]
     Indication: SCHIZOPHRENIA
     Dosage: 550 MILLIGRAM DAILY; 550MG DAILY IN DIVIDED DOSES; THEN WITHDRAWN FOR 24H
     Route: 065
  3. CLOZAPINE [Interacting]
     Indication: SCHIZOPHRENIA
     Dosage: 400 MILLIGRAM DAILY;
     Route: 065
  4. CLOZAPINE [Interacting]
     Route: 065
  5. AZITHROMYCIN [Interacting]
     Indication: URETHRITIS
     Route: 065
  6. SCOPOLAMINE HYDROBROMIDE [Concomitant]
     Indication: SALIVARY HYPERSECRETION
     Dosage: 600 MICROGRAM DAILY;
     Route: 065

REACTIONS (3)
  - Toxicity to various agents [Recovering/Resolving]
  - Drug interaction [Recovering/Resolving]
  - Urethritis [Unknown]
